FAERS Safety Report 4359582-0 (Version None)
Quarter: 2004Q2

REPORT INFORMATION
  Report Type: 
  Country: None (occurrence: None)
  Receive Date: 20040518
  Receipt Date: 20040121
  Transmission Date: 20050107
  Serious: Yes (Death, Hospitalization)
  Sender: FDA-Public Use
  Company Number: GB-AMGEN-US064971

PATIENT
  Sex: Male

DRUGS (10)
  1. ENBREL [Suspect]
     Indication: DRUG USE FOR UNKNOWN INDICATION
     Route: 058
     Dates: start: 20040107, end: 20040112
  2. LEFLUNOMIDE [Suspect]
     Route: 048
     Dates: start: 20021022
  3. TRAMADOL HCL [Concomitant]
  4. SIMVASTATIN [Concomitant]
  5. INDAPAMIDE [Concomitant]
  6. METFORMIN HCL [Concomitant]
  7. ALENDRONATE SODIUM [Concomitant]
  8. LANSOPRAZOLE [Concomitant]
  9. CALCICHEW [Concomitant]
  10. INSULIN NORDISK MIXTARD (PORK) [Concomitant]

REACTIONS (7)
  - COLITIS [None]
  - GASTROINTESTINAL HAEMORRHAGE [None]
  - HAEMOGLOBIN DECREASED [None]
  - HYPOGLYCAEMIA [None]
  - LOSS OF CONSCIOUSNESS [None]
  - MULTI-ORGAN FAILURE [None]
  - SEPSIS [None]
